FAERS Safety Report 5166637-X (Version None)
Quarter: 2006Q4

REPORT INFORMATION
  Report Type: 
  Country: None (occurrence: None)
  Receive Date: 20061129
  Receipt Date: 20061129
  Transmission Date: 20070319
  Serious: Yes (Other)
  Sender: FDA-Public Use
  Company Number: None

PATIENT
  Age: 25 Year
  Sex: Female

DRUGS (3)
  1. ALDOMET [Suspect]
     Dates: start: 20050301, end: 20051026
  2. DYAZIDE [Concomitant]
  3. ATENOLOL [Concomitant]

REACTIONS (8)
  - BIOPSY LIVER ABNORMAL [None]
  - BLOOD PRESSURE INADEQUATELY CONTROLLED [None]
  - CAESAREAN SECTION [None]
  - DRUG EXPOSURE DURING PREGNANCY [None]
  - HEPATIC NECROSIS [None]
  - HEPATIC TRAUMA [None]
  - HEPATITIS [None]
  - PRE-ECLAMPSIA [None]
